FAERS Safety Report 13034511 (Version 1)
Quarter: 2016Q4

REPORT INFORMATION
  Report Type: Report from Study
  Country: US (occurrence: US)
  Receive Date: 20161216
  Receipt Date: 20161216
  Transmission Date: 20170207
  Serious: Yes (Hospitalization, Other)
  Sender: FDA-Public Use
  Company Number: US-BAYER-2016-230955

PATIENT
  Age: 69 Year
  Sex: Female
  Weight: 90.7 kg

DRUGS (17)
  1. AUGMENTIN XR [Concomitant]
     Active Substance: AMOXICILLIN\CLAVULANATE POTASSIUM
  2. CHLORAMPHENICOL [Concomitant]
     Active Substance: CHLORAMPHENICOL
  3. NEOMYCIN SULFATE. [Concomitant]
     Active Substance: NEOMYCIN SULFATE
  4. BIAXIN [Concomitant]
     Active Substance: CLARITHROMYCIN
  5. GARAMYCIN [Concomitant]
     Active Substance: GENTAMICIN SULFATE
  6. AMOXICILLIN. [Concomitant]
     Active Substance: AMOXICILLIN
  7. NEXAVAR [Suspect]
     Active Substance: SORAFENIB
     Indication: HEPATIC CANCER METASTATIC
     Dosage: 200 MG, BID
     Route: 048
     Dates: start: 20161103, end: 2016
  8. NEXAVAR [Suspect]
     Active Substance: SORAFENIB
     Indication: METASTASES TO BONE
  9. CODEINE SULFATE. [Concomitant]
     Active Substance: CODEINE SULFATE
  10. ENALAPRIL [Concomitant]
     Active Substance: ENALAPRIL
  11. HYDROCORTISONE. [Concomitant]
     Active Substance: HYDROCORTISONE
  12. PREDNISONE. [Concomitant]
     Active Substance: PREDNISONE
  13. MEDROL [Concomitant]
     Active Substance: METHYLPREDNISOLONE
  14. PRINIVIL [Concomitant]
     Active Substance: LISINOPRIL
  15. TOBRAMYCIN SULFATE. [Concomitant]
     Active Substance: TOBRAMYCIN SULFATE
  16. BLEPH-10 [Concomitant]
     Active Substance: SULFACETAMIDE SODIUM
  17. LISINOPRIL. [Concomitant]
     Active Substance: LISINOPRIL

REACTIONS (7)
  - Sternal fracture [Unknown]
  - Dehydration [Recovered/Resolved]
  - Activities of daily living impaired [Unknown]
  - Pneumonia [None]
  - Asthenia [Unknown]
  - Fall [None]
  - Diarrhoea [Recovered/Resolved]

NARRATIVE: CASE EVENT DATE: 2016
